FAERS Safety Report 22119131 (Version 1)
Quarter: 2023Q1

REPORT INFORMATION
  Report Type: Spontaneous
  Country: US (occurrence: US)
  Receive Date: 20230321
  Receipt Date: 20230321
  Transmission Date: 20230418
  Serious: Yes (Other)
  Sender: FDA-Public Use
  Company Number: US-drreddys-SPO/USA/23/0162520

PATIENT
  Age: 20 Year
  Sex: Female

DRUGS (7)
  1. TACROLIMUS [Suspect]
     Active Substance: TACROLIMUS
     Indication: Glomerulonephritis membranoproliferative
  2. PREDNISONE [Suspect]
     Active Substance: PREDNISONE
     Indication: Polyarthritis
     Route: 048
  3. PREDNISONE [Suspect]
     Active Substance: PREDNISONE
     Indication: Glomerulonephritis membranoproliferative
  4. MYCOPHENOLATE MOFETIL [Suspect]
     Active Substance: MYCOPHENOLATE MOFETIL
     Indication: Glomerulonephritis membranoproliferative
     Route: 048
  5. MYCOPHENOLATE MOFETIL [Suspect]
     Active Substance: MYCOPHENOLATE MOFETIL
     Indication: Glomerulonephritis membranoproliferative
  6. WARFARIN [Concomitant]
     Active Substance: WARFARIN
     Indication: Deep vein thrombosis
  7. WARFARIN [Concomitant]
     Active Substance: WARFARIN
     Indication: Pulmonary embolism

REACTIONS (7)
  - Hepatotoxicity [Unknown]
  - Pulmonary embolism [Unknown]
  - Chronic cutaneous lupus erythematosus [Unknown]
  - Deep vein thrombosis [Unknown]
  - Post herpetic neuralgia [Unknown]
  - Herpes zoster [Recovered/Resolved]
  - Product use in unapproved indication [Unknown]
